FAERS Safety Report 4567871-X (Version None)
Quarter: 2005Q1

REPORT INFORMATION
  Report Type: 
  Country: None (occurrence: None)
  Receive Date: 20050128
  Receipt Date: 20050112
  Transmission Date: 20050727
  Serious: Yes (Hospitalization)
  Sender: FDA-Public Use
  Company Number: 2005BI000923

PATIENT
  Age: 55 Year
  Sex: Female
  Weight: 56.6996 kg

DRUGS (4)
  1. AVONEX [Suspect]
     Indication: MULTIPLE SCLEROSIS
     Dosage: 30 UG; QW; IM
     Route: 030
     Dates: start: 19860101, end: 20040101
  2. AVONEX [Suspect]
     Indication: MULTIPLE SCLEROSIS
     Dosage: 30 UG; QW; IM
     Route: 030
     Dates: start: 20040101
  3. BACLOFEN [Concomitant]
  4. KLONOPIN [Concomitant]

REACTIONS (7)
  - ATROPHY [None]
  - BLADDER SPASM [None]
  - BREAST CANCER FEMALE [None]
  - CALCULUS BLADDER [None]
  - DECUBITUS ULCER [None]
  - LIMB INJURY [None]
  - SKIN GRAFT INFECTION [None]
